FAERS Safety Report 20680145 (Version 2)
Quarter: 2022Q3

REPORT INFORMATION
  Report Type: Report from Study
  Country: CN (occurrence: None)
  Receive Date: 20220406
  Receipt Date: 20220729
  Transmission Date: 20221027
  Serious: Yes (Hospitalization)
  Sender: FDA-Public Use
  Company Number: CN-Eisai Medical Research-EC-2022-112203

PATIENT
  Age: 64 Year
  Sex: Female
  Weight: 60.5 kg

DRUGS (5)
  1. LENVATINIB [Suspect]
     Active Substance: LENVATINIB
     Indication: Hepatocellular carcinoma
     Route: 048
     Dates: start: 20210901, end: 20211007
  2. INVESTIGATIONAL PRODUCT [Suspect]
     Active Substance: INVESTIGATIONAL PRODUCT
     Indication: Hepatocellular carcinoma
     Route: 041
     Dates: start: 20210901, end: 202110
  3. ENTECAVIR [Concomitant]
     Active Substance: ENTECAVIR
     Route: 065
  4. CAFFEIC ACID [Concomitant]
     Active Substance: CAFFEIC ACID
     Route: 065
  5. MONTMORILLONITE [Concomitant]
     Active Substance: MONTMORILLONITE
     Route: 065

REACTIONS (1)
  - Gastrointestinal haemorrhage [Recovered/Resolved]

NARRATIVE: CASE EVENT DATE: 20211006
